FAERS Safety Report 7262007-9 (Version None)
Quarter: 2011Q1

REPORT INFORMATION
  Report Type: 
  Country: None (occurrence: None)
  Receive Date: 20110130
  Receipt Date: 20101102
  Transmission Date: 20110831
  Serious: No
  Sender: FDA-Public Use
  Company Number: US-ABBOTT-10P-163-0683439-00

PATIENT
  Sex: Female
  Weight: 93.07 kg

DRUGS (6)
  1. FLAGYL [Concomitant]
     Indication: FISTULA
  2. HUMIRA [Suspect]
     Dates: start: 20101029
  3. AMBIEN CR [Concomitant]
     Indication: INSOMNIA
     Dates: start: 20000101
  4. FLAGYL [Concomitant]
     Indication: CROHN'S DISEASE
  5. FENTANYL [Concomitant]
     Indication: PAIN
     Route: 062
     Dates: start: 20000101
  6. HUMIRA [Suspect]
     Indication: CROHN'S DISEASE
     Dates: start: 20101015

REACTIONS (8)
  - BURNING SENSATION [None]
  - WEIGHT INCREASED [None]
  - FATIGUE [None]
  - MIGRAINE [None]
  - GENERALISED OEDEMA [None]
  - SKIN BURNING SENSATION [None]
  - ARTHRALGIA [None]
  - PRURITUS [None]
